FAERS Safety Report 4542495-9 (Version None)
Quarter: 2004Q4

REPORT INFORMATION
  Report Type: 
  Country: None (occurrence: None)
  Receive Date: 20041227
  Receipt Date: 20041209
  Transmission Date: 20050328
  Serious: Yes (Life-Threatening, Hospitalization)
  Sender: FDA-Public Use
  Company Number: 210246

PATIENT
  Age: 41 Year
  Sex: Female
  Weight: 49.9 kg

DRUGS (5)
  1. RITUXAN [Suspect]
     Indication: NON-HODGKIN'S LYMPHOMA
     Dosage: 375MG/M2 Q3W INTRAVENOUS
     Route: 042
     Dates: start: 20040621, end: 20040909
  2. CYTOXAN [Suspect]
     Dosage: 750 MG/M2 Q3W INTRAVENOUS
     Route: 042
     Dates: start: 20040621, end: 20040909
  3. DOXORUBICIN HYDROCHLORIDE [Suspect]
     Dosage: 50MG/M2 Q3W INTRAVENOUS
     Route: 042
     Dates: start: 20040621, end: 20040909
  4. VINCRISTINE [Suspect]
     Dosage: 1.4 MG/M2 Q3W INTRAVENOUS
     Route: 042
     Dates: start: 20040621, end: 20040909
  5. PREDNISONE(PREDNISONE) [Suspect]
     Dosage: 100MG QDX5D /21DC INTRAVENOUS
     Route: 042
     Dates: start: 20040621, end: 20040909

REACTIONS (5)
  - DISEASE RECURRENCE [None]
  - HEPATITIS B [None]
  - HEPATITIS B ANTIBODY POSITIVE [None]
  - HEPATITIS B SURFACE ANTIGEN POSITIVE [None]
  - HEPATITIS FULMINANT [None]
